FAERS Safety Report 6424446-5 (Version None)
Quarter: 2009Q4

REPORT INFORMATION
  Report Type: 
  Country: None (occurrence: None)
  Receive Date: 20091103
  Receipt Date: 20091029
  Transmission Date: 20100525
  Serious: Yes (Death)
  Sender: FDA-Public Use
  Company Number: US-BRISTOL-MYERS SQUIBB COMPANY-14837561

PATIENT

DRUGS (1)
  1. BUSPAR [Suspect]

REACTIONS (1)
  - DEATH [None]
